FAERS Safety Report 6033840-6 (Version None)
Quarter: 2009Q1

REPORT INFORMATION
  Report Type: 
  Country: None (occurrence: None)
  Receive Date: 20090109
  Receipt Date: 20090109
  Transmission Date: 20090719
  Serious: Yes (Other)
  Sender: FDA-Public Use
  Company Number: None

PATIENT
  Age: 83 Year
  Sex: Male

DRUGS (7)
  1. ZOMETA [Suspect]
     Indication: PROSTATE CANCER
     Dosage: 4 MG IV MONTHLY
     Dates: start: 20060101, end: 20070101
  2. LUPRON [Concomitant]
  3. VYTORIN [Concomitant]
  4. AMOXICILLIN [Concomitant]
  5. ASPIRIN [Concomitant]
  6. LEXAPRO [Concomitant]
  7. LANSOPRAZOLE [Concomitant]

REACTIONS (3)
  - IMPAIRED HEALING [None]
  - OSTEONECROSIS [None]
  - TOOTH DISORDER [None]
